FAERS Safety Report 20077545 (Version 1)
Quarter: 2021Q4

REPORT INFORMATION
  Report Type: Spontaneous
  Country: US (occurrence: US)
  Receive Date: 20211116
  Receipt Date: 20211116
  Transmission Date: 20220303
  Serious: Yes (Other)
  Sender: FDA-Public Use
  Company Number: US-ALLERGAN-2138551US

PATIENT
  Sex: Female

DRUGS (1)
  1. ARMOUR THYROID [Suspect]
     Active Substance: THYROID, PORCINE
     Indication: Autoimmune thyroiditis
     Dosage: UNK

REACTIONS (2)
  - Anti-neutrophil cytoplasmic antibody positive vasculitis [Recovering/Resolving]
  - Acute kidney injury [Unknown]
